FAERS Safety Report 13958472 (Version 1)
Quarter: 2017Q3

REPORT INFORMATION
  Report Type: Spontaneous
  Country: US (occurrence: US)
  Receive Date: 20170911
  Receipt Date: 20170911
  Transmission Date: 20171128
  Serious: No
  Sender: FDA-Public Use
  Company Number: US-ROCHE-1856464

PATIENT
  Age: 88 Year
  Sex: Female

DRUGS (1)
  1. TECENTRIQ [Suspect]
     Active Substance: ATEZOLIZUMAB
     Indication: TRANSITIONAL CELL CARCINOMA
     Route: 042
     Dates: start: 20161005

REACTIONS (3)
  - Osteonecrosis [Unknown]
  - Arthralgia [Unknown]
  - Inflammation [Unknown]

NARRATIVE: CASE EVENT DATE: 20161114
